FAERS Safety Report 4946487-7 (Version None)
Quarter: 2006Q1

REPORT INFORMATION
  Report Type: 
  Country: None (occurrence: None)
  Receive Date: 20060317
  Receipt Date: 20060307
  Transmission Date: 20060701
  Serious: Yes (Hospitalization, Other)
  Sender: FDA-Public Use
  Company Number: CA-JNJFOC-20060103593

PATIENT
  Sex: Female
  Weight: 75 kg

DRUGS (16)
  1. REMICADE [Suspect]
     Indication: POLYARTHRITIS
     Route: 042
     Dates: start: 20050609, end: 20051114
  2. PLAQUENIL [Concomitant]
     Indication: POLYARTHRITIS
     Route: 048
  3. VITAMIN B6 [Concomitant]
  4. ADVAIR DISKUS 100/50 [Concomitant]
     Route: 055
  5. ADVAIR DISKUS 100/50 [Concomitant]
     Indication: ASTHMA
     Route: 055
  6. SINGULAIR [Concomitant]
     Indication: ASTHMA
     Route: 048
  7. FOLIC ACID [Concomitant]
     Indication: NUTRITIONAL SUPPORT
     Route: 048
  8. CELEBREX [Concomitant]
     Indication: POLYARTHRITIS
  9. FOSAMAX [Concomitant]
     Indication: OSTEOPOROSIS
     Route: 048
  10. CALCIUM GLUCONATE [Concomitant]
     Indication: OSTEOPOROSIS
     Route: 048
  11. HYDRA-ZIDE [Concomitant]
     Indication: HYPERTENSION
     Route: 048
  12. SERAX [Concomitant]
     Indication: SLEEP DISORDER
     Route: 048
  13. NEXIUM [Concomitant]
     Indication: DYSPHAGIA
     Route: 048
  14. TYLENOL (CAPLET) [Concomitant]
     Indication: PAIN
     Route: 048
  15. PAXIL [Concomitant]
     Indication: DEPRESSION
     Route: 048
  16. PREDNISONE [Concomitant]
     Indication: POLYARTHRITIS
     Route: 048

REACTIONS (3)
  - APPENDICITIS [None]
  - DIVERTICULAR PERFORATION [None]
  - PERITONITIS [None]
